FAERS Safety Report 10399250 (Version 1)
Quarter: 2014Q3

REPORT INFORMATION
  Report Type: Spontaneous
  Country: US (occurrence: None)
  Receive Date: 20140818
  Receipt Date: 20140818
  Transmission Date: 20150326
  Serious: No
  Sender: FDA-Public Use
  Company Number: None

PATIENT
  Age: 68 Year
  Sex: Female
  Weight: 77.11 kg

DRUGS (2)
  1. ESCITALOPRAM [Suspect]
     Active Substance: ESCITALOPRAM OXALATE
     Indication: DEPRESSION
     Dosage: 1 TABLET DAILY ONCE DAILY TAKEN BY MOUTH
     Route: 048
     Dates: start: 20140613, end: 20140816
  2. ESCITALOPRAM [Suspect]
     Active Substance: ESCITALOPRAM OXALATE
     Indication: ANXIETY
     Dosage: 1 TABLET DAILY ONCE DAILY TAKEN BY MOUTH
     Route: 048
     Dates: start: 20140613, end: 20140816

REACTIONS (2)
  - Suicidal ideation [None]
  - Tinnitus [None]

NARRATIVE: CASE EVENT DATE: 20140814
